FAERS Safety Report 5533538-4 (Version None)
Quarter: 2007Q4

REPORT INFORMATION
  Report Type: 
  Country: None (occurrence: None)
  Receive Date: 20071204
  Receipt Date: 20071127
  Transmission Date: 20080405
  Serious: Yes (Hospitalization)
  Sender: FDA-Public Use
  Company Number: JP-PFIZER INC-2007100728

PATIENT
  Age: 39 Year
  Sex: Female

DRUGS (17)
  1. ATARAX [Suspect]
     Indication: PRURITUS
     Dosage: TEXT:TDD:25-50MG
     Route: 030
     Dates: start: 20071022, end: 20071028
  2. LAMISIL [Suspect]
     Route: 048
  3. VOLTAREN - SLOW RELEASE ^NOVARTIS^ [Suspect]
     Route: 048
  4. CRAVIT [Suspect]
     Route: 048
  5. POLARAMINE [Suspect]
     Route: 048
  6. PENTAGIN [Suspect]
  7. PREDONINE [Suspect]
     Route: 048
  8. BEZATOL - SLOW RELEASE [Concomitant]
     Route: 048
  9. FAMOTIDINE [Concomitant]
     Route: 048
  10. EBASTEL [Concomitant]
     Route: 048
  11. BLOPRESS [Concomitant]
     Route: 048
  12. THEO-DUR [Concomitant]
     Route: 048
  13. HALCION [Concomitant]
     Route: 048
  14. SEROQUEL [Concomitant]
     Route: 048
  15. SILECE [Concomitant]
     Route: 048
  16. SEPAZON [Concomitant]
     Route: 048
  17. TOLEDOMIN [Concomitant]
     Route: 048

REACTIONS (1)
  - HEPATIC FUNCTION ABNORMAL [None]
